FAERS Safety Report 9702576 (Version 2)
Quarter: 2013Q4

REPORT INFORMATION
  Report Type: Spontaneous
  Country: US (occurrence: US)
  Receive Date: 20131121
  Receipt Date: 20131217
  Transmission Date: 20140711
  Serious: Yes (Hospitalization, Other)
  Sender: FDA-Public Use
  Company Number: US-GILEAD-2013-0088373

PATIENT
  Sex: Female

DRUGS (5)
  1. LETAIRIS [Suspect]
     Indication: PULMONARY HYPERTENSION
     Dosage: 10 MG, QD
     Route: 048
     Dates: start: 20110614
  2. LETAIRIS [Suspect]
     Indication: SJOGREN^S SYNDROME
  3. LETAIRIS [Suspect]
     Indication: SLEEP APNOEA SYNDROME
  4. TYVASO [Concomitant]
  5. WARFARIN [Concomitant]

REACTIONS (2)
  - Abdominal pain [Unknown]
  - Oedema peripheral [Unknown]
